FAERS Safety Report 21896693 (Version 2)
Quarter: 2023Q1

REPORT INFORMATION
  Report Type: Other
  Country: US (occurrence: None)
  Receive Date: 20230123
  Receipt Date: 20230124
  Transmission Date: 20230418
  Serious: Yes (Death)
  Sender: FDA-Public Use
  Company Number: US-ROCHE-3009706

PATIENT
  Age: 62 Year
  Sex: Female

DRUGS (1)
  1. OCREVUS [Suspect]
     Active Substance: OCRELIZUMAB
     Indication: Relapsing multiple sclerosis
     Dosage: 600 MG EVERY 6 MONTHS?DOT: 09-AUG-2021, 25-JAN-2021, 27-JUL-2020, 28-JAN-2020, 01-AUG-2019, 18-JUL-2
     Route: 042
     Dates: start: 20190718

REACTIONS (5)
  - COVID-19 [Fatal]
  - Sepsis [Fatal]
  - Acute respiratory failure [Fatal]
  - Confusional state [Fatal]
  - Asthenia [Fatal]

NARRATIVE: CASE EVENT DATE: 20220105
